APPROVED DRUG PRODUCT: LANOXICAPS
Active Ingredient: DIGOXIN
Strength: 0.2MG
Dosage Form/Route: CAPSULE;ORAL
Application: N018118 | Product #001
Applicant: GLAXOSMITHKLINE LLC
Approved: Jul 26, 1982 | RLD: No | RS: No | Type: DISCN